FAERS Safety Report 12913041 (Version 6)
Quarter: 2017Q1

REPORT INFORMATION
  Report Type: Report from Study
  Country: None (occurrence: ES)
  Receive Date: 20161104
  Receipt Date: 20170131
  Transmission Date: 20170428
  Serious: Yes (Other)
  Sender: FDA-Public Use
  Company Number: ES-ABBVIE-16K-144-1727834-00

PATIENT
  Age: 75 Year
  Sex: Male
  Weight: 47 kg

DRUGS (13)
  1. DUODOPA [Interacting]
     Active Substance: CARBIDOPA\LEVODOPA
     Dosage: CONTINUOUS DOSE: 4.5 ML/H?EXTRA DOSE: 3.6 ML
     Route: 050
     Dates: start: 20161104, end: 201611
  2. XADAGO [Interacting]
     Active Substance: SAFINAMIDE
     Indication: PRODUCT USED FOR UNKNOWN INDICATION
     Route: 065
     Dates: start: 201607, end: 201608
  3. DUODOPA [Suspect]
     Active Substance: CARBIDOPA\LEVODOPA
     Indication: PARKINSON^S DISEASE
     Route: 050
     Dates: start: 20160215, end: 2016
  4. DUODOPA [Interacting]
     Active Substance: CARBIDOPA\LEVODOPA
     Dosage: CONTINUOUS DOSE: 4.2 ML, EXTRA DOSE: 3.4 ML
     Route: 050
     Dates: start: 2016, end: 20161104
  5. SINEMET RETARD [Concomitant]
     Indication: PRODUCT USED FOR UNKNOWN INDICATION
     Dosage: CONTINUOUS DOSE: 4.5 ML/H?EXTRA DOSE: 3.6 ML
     Dates: start: 20161104
  6. DUODOPA [Interacting]
     Active Substance: CARBIDOPA\LEVODOPA
     Dosage: MD: 11 ML; CD: 3.9 ML; ED: 5 ML, IN THE EVENING: CD: 4.5 ML; ED: 5 ML
     Route: 050
     Dates: start: 2016, end: 2016
  7. DUODOPA [Interacting]
     Active Substance: CARBIDOPA\LEVODOPA
     Dosage: CONTINUOUS DOSE IN THE AFTERNOON: 4.3 ML/H
     Route: 050
     Dates: start: 2016
  8. DUODOPA [Interacting]
     Active Substance: CARBIDOPA\LEVODOPA
     Dosage: DC 3.5 AND DE 3.2 ML
     Route: 050
     Dates: start: 2016, end: 2016
  9. DUODOPA [Interacting]
     Active Substance: CARBIDOPA\LEVODOPA
     Dosage: DC IN THE AFTERNOON 4ML/H AND DE 3.3 ML
     Route: 050
     Dates: start: 2016, end: 2016
  10. DUODOPA [Interacting]
     Active Substance: CARBIDOPA\LEVODOPA
     Dosage: AFTERNOON: ED: 3.4ML, CD: 4ML/H, MORNING: MD: 8.3ML, CD: 3.5 ML/H, ED: 3.3ML
     Route: 050
     Dates: start: 201611, end: 2016
  11. LORAZEPAM. [Concomitant]
     Active Substance: LORAZEPAM
     Indication: PRODUCT USED FOR UNKNOWN INDICATION
  12. DUODOPA [Interacting]
     Active Substance: CARBIDOPA\LEVODOPA
     Dosage: DC 3.3 AND DE 3 ML
     Route: 050
     Dates: start: 2016, end: 2016
  13. DUODOPA [Interacting]
     Active Substance: CARBIDOPA\LEVODOPA
     Dosage: DC 3.5 ML/H AND DE 3.3 ML
     Route: 050
     Dates: start: 2016, end: 2016

REACTIONS (19)
  - Dysphagia [Recovered/Resolved]
  - Dyskinesia [Recovered/Resolved]
  - Dysphagia [Recovered/Resolved]
  - Drug ineffective [Unknown]
  - Weight decreased [Recovered/Resolved]
  - On and off phenomenon [Recovered/Resolved]
  - Musculoskeletal stiffness [Recovered/Resolved]
  - Dyskinesia [Unknown]
  - Thrombosis [Unknown]
  - Akinesia [Recovering/Resolving]
  - Drug ineffective [Recovered/Resolved]
  - Restlessness [Not Recovered/Not Resolved]
  - Dyskinesia [Recovered/Resolved]
  - Anxiety [Not Recovered/Not Resolved]
  - Drug interaction [Recovering/Resolving]
  - Mental disorder [Recovered/Resolved]
  - Fatigue [Not Recovered/Not Resolved]
  - Freezing phenomenon [Not Recovered/Not Resolved]
  - On and off phenomenon [Unknown]

NARRATIVE: CASE EVENT DATE: 2016
